FAERS Safety Report 5147296-9 (Version None)
Quarter: 2006Q4

REPORT INFORMATION
  Report Type: 
  Country: None (occurrence: None)
  Receive Date: 20061103
  Receipt Date: 20061019
  Transmission Date: 20070319
  Serious: Yes (Hospitalization)
  Sender: FDA-Public Use
  Company Number: 8018723

PATIENT
  Age: 60 Year
  Sex: Female

DRUGS (1)
  1. THEOPHYLLINE [Suspect]
     Indication: CHRONIC OBSTRUCTIVE PULMONARY DISEASE

REACTIONS (16)
  - ABDOMINAL PAIN [None]
  - ABDOMINAL TENDERNESS [None]
  - BLOOD BICARBONATE DECREASED [None]
  - BLOOD CHLORIDE DECREASED [None]
  - BLOOD OSMOLARITY DECREASED [None]
  - BLOOD POTASSIUM DECREASED [None]
  - BLOOD SODIUM DECREASED [None]
  - DRUG TOXICITY [None]
  - INAPPROPRIATE ANTIDIURETIC HORMONE SECRETION [None]
  - NAUSEA [None]
  - OVERDOSE [None]
  - TACHYCARDIA [None]
  - TACHYPNOEA [None]
  - TREMOR [None]
  - URINE OSMOLARITY INCREASED [None]
  - URINE SODIUM INCREASED [None]
